FAERS Safety Report 9849430 (Version 3)
Quarter: 2014Q1

REPORT INFORMATION
  Report Type: Spontaneous
  Country: US (occurrence: None)
  Receive Date: 20140124
  Receipt Date: 20140227
  Transmission Date: 20141002
  Serious: Yes (Hospitalization, Other)
  Sender: FDA-Public Use
  Company Number: ADR-2014-00091

PATIENT
  Age: 70 Year
  Sex: Male

DRUGS (20)
  1. BACLOFEN [Suspect]
     Dates: start: 20110302, end: 20121008
  2. COPAXONE [Suspect]
     Indication: MULTIPLE SCLEROSIS
     Dates: start: 20130421
  3. SINEMET [Suspect]
  4. MORPHINE [Suspect]
  5. BUPIVACAINE INTRATHECAL [Suspect]
  6. BACLOFEN [Suspect]
  7. COPAXONE [Suspect]
  8. PLAVIX [Suspect]
  9. BUSPIRONE [Suspect]
  10. FOSINOPRIL [Suspect]
  11. LASIX [Suspect]
  12. ISOSORBIDE [Suspect]
  13. METHYLPHENIDATE [Suspect]
  14. METOPROLOL [Suspect]
  15. NIASPAN [Suspect]
  16. PROTONIX [Suspect]
  17. SEROQUEL [Suspect]
  18. RANEXA [Suspect]
  19. LORTAB [Suspect]
  20. TAMSULOSIN [Suspect]

REACTIONS (10)
  - Asthenia [None]
  - Speech disorder [None]
  - Abasia [None]
  - General physical health deterioration [None]
  - Multiple sclerosis relapse [None]
  - Back pain [None]
  - Urinary retention [None]
  - Activities of daily living impaired [None]
  - Pain [None]
  - Drug ineffective [None]
